FAERS Safety Report 20155572 (Version 1)
Quarter: 2021Q4

REPORT INFORMATION
  Report Type: Spontaneous
  Country: US (occurrence: US)
  Receive Date: 20211207
  Receipt Date: 20211207
  Transmission Date: 20220303
  Serious: No
  Sender: FDA-Public Use
  Company Number: US-ALKERMES INC.-ALK-2021-006269

PATIENT
  Sex: Female

DRUGS (1)
  1. VIVITROL [Suspect]
     Active Substance: NALTREXONE
     Indication: Paternal exposure timing unspecified
     Dosage: 380 MILLIGRAM, QMO
     Route: 064

REACTIONS (1)
  - Paternal exposure during pregnancy [Unknown]
